FAERS Safety Report 8809382 (Version 1)
Quarter: 2012Q4

REPORT INFORMATION
  Report Type: 
  Country: US (occurrence: US)
  Receive Date: 20120926
  Receipt Date: 20120926
  Transmission Date: 20130627
  Serious: No
  Sender: FDA-Public Use
  Company Number: US-ASTRAZENECA-2012SE65218

PATIENT
  Age: 60 Year
  Sex: Female
  Weight: 61.2 kg

DRUGS (11)
  1. NEXIUM [Suspect]
     Indication: GASTROOESOPHAGEAL REFLUX DISEASE
     Route: 048
     Dates: start: 2004
  2. NEXIUM [Suspect]
     Indication: HIATUS HERNIA
     Route: 048
     Dates: start: 2004
  3. NEXIUM [Suspect]
     Indication: OESOPHAGEAL SPASM
     Route: 048
     Dates: start: 2004
  4. DARVESET [Concomitant]
  5. LOW THYROID MEDICATION [Concomitant]
  6. HORMONE THERAPY [Concomitant]
  7. IBUPROFEN [Concomitant]
     Indication: PAIN
  8. METAXALONE [Concomitant]
     Indication: MUSCLE RELAXANT THERAPY
  9. CALCIUM [Concomitant]
  10. VITAMINS [Concomitant]
  11. NASONEX [Concomitant]
     Indication: SEASONAL ALLERGY

REACTIONS (3)
  - Intervertebral disc degeneration [Unknown]
  - Intervertebral disc protrusion [Unknown]
  - Hiatus hernia [Unknown]
